FAERS Safety Report 8019852-1 (Version None)
Quarter: 2011Q4

REPORT INFORMATION
  Report Type: 
  Country: None (occurrence: None)
  Receive Date: 20111229
  Receipt Date: 20111216
  Transmission Date: 20120403
  Serious: Yes (Other)
  Sender: FDA-Public Use
  Company Number: 2010S1000374

PATIENT
  Age: 56 Year
  Sex: Female
  Weight: 120.2032 kg

DRUGS (16)
  1. CARDIZEM CD [Concomitant]
  2. ASPIRIN [Concomitant]
  3. DEMADEX [Concomitant]
  4. SODIUM PHOSPHATE MONOBASIC MONOHYDRATE AND NAPO4 DIBASIC ANHYDROUS [Suspect]
     Indication: COLONOSCOPY
     Dosage: 90 ML; TOTAL;PO
     Route: 048
     Dates: start: 20000601, end: 20000601
  5. AMITRIPTYLINE HCL [Concomitant]
  6. DESYREL [Concomitant]
  7. TOPROL-XL [Concomitant]
  8. LIPITOR [Concomitant]
  9. ZANTAC [Concomitant]
  10. CENTRUM /00554501/ [Concomitant]
  11. AVAPRO [Concomitant]
  12. DIAZEPAM [Concomitant]
  13. GINKOBA [Concomitant]
  14. ZOLOFT [Concomitant]
  15. VITAMIN E /00110501/ [Concomitant]
  16. GLUCOPHAGE [Concomitant]

REACTIONS (15)
  - DYSPNOEA [None]
  - DIABETES MELLITUS [None]
  - HELICOBACTER TEST POSITIVE [None]
  - COLONIC POLYP [None]
  - NEPHROCALCINOSIS [None]
  - HYPERTENSION [None]
  - GASTROOESOPHAGEAL REFLUX DISEASE [None]
  - TREATMENT NONCOMPLIANCE [None]
  - HYPERKALAEMIA [None]
  - NEPHROLITHIASIS [None]
  - HAEMORRHOIDS [None]
  - FATIGUE [None]
  - PERITONEAL DIALYSIS [None]
  - SLEEP APNOEA SYNDROME [None]
  - RENAL FAILURE [None]
